FAERS Safety Report 11124631 (Version 1)
Quarter: 2015Q2

REPORT INFORMATION
  Report Type: Spontaneous
  Country: US (occurrence: None)
  Receive Date: 20150519
  Receipt Date: 20150519
  Transmission Date: 20150821
  Serious: No
  Sender: FDA-Public Use
  Company Number: None

PATIENT
  Age: 57 Year
  Sex: Female
  Weight: 62.6 kg

DRUGS (9)
  1. VITAMIN D [Concomitant]
     Active Substance: CHOLECALCIFEROL
  2. CHLORAPREP [Suspect]
     Active Substance: CHLORHEXIDINE GLUCONATE\ISOPROPYL ALCOHOL
     Indication: BIOPSY THYROID GLAND
  3. LOVASTATIN. [Concomitant]
     Active Substance: LOVASTATIN
  4. DAILY VITAMIN [Concomitant]
     Active Substance: VITAMINS
  5. LUTEIN [Concomitant]
     Active Substance: LUTEIN
  6. CHLORAPREP [Suspect]
     Active Substance: CHLORHEXIDINE GLUCONATE\ISOPROPYL ALCOHOL
     Indication: PREOPERATIVE CARE
  7. CALCIUM [Concomitant]
     Active Substance: CALCIUM
  8. MAGNESIUM [Concomitant]
     Active Substance: MAGNESIUM
  9. FISH OIL [Concomitant]
     Active Substance: FISH OIL

REACTIONS (5)
  - Application site urticaria [None]
  - Drug hypersensitivity [None]
  - Rash pruritic [None]
  - Application site rash [None]
  - Rash erythematous [None]

NARRATIVE: CASE EVENT DATE: 20150505
